FAERS Safety Report 23461871 (Version 2)
Quarter: 2024Q1

REPORT INFORMATION
  Report Type: Spontaneous
  Country: US (occurrence: US)
  Receive Date: 20240131
  Receipt Date: 20240209
  Transmission Date: 20240410
  Serious: No
  Sender: FDA-Public Use
  Company Number: US-SA-SAC20240123000301

PATIENT
  Age: 69 Year
  Sex: Male
  Weight: 90 kg

DRUGS (12)
  1. DUPIXENT [Suspect]
     Active Substance: DUPILUMAB
     Indication: Dermatitis atopic
     Dosage: 300 MG, QOW
     Route: 058
     Dates: start: 20231004
  2. DUPIXENT [Suspect]
     Active Substance: DUPILUMAB
     Indication: Eczema nummular
  3. ADBRY [Concomitant]
     Active Substance: TRALOKINUMAB-LDRM
  4. VITAMINS NOS [Concomitant]
     Active Substance: VITAMINS
  5. ZYRTEC-D [Concomitant]
     Active Substance: CETIRIZINE HYDROCHLORIDE\PSEUDOEPHEDRINE HYDROCHLORIDE
  6. SIMVASTATIN [Concomitant]
     Active Substance: SIMVASTATIN
  7. METFORMIN [Concomitant]
     Active Substance: METFORMIN HYDROCHLORIDE
  8. OLMESARTAN [Concomitant]
     Active Substance: OLMESARTAN
  9. COMIRNATY (TOZINAMERAN) [Concomitant]
     Active Substance: TOZINAMERAN
  10. SILDENAFIL [Concomitant]
     Active Substance: SILDENAFIL
  11. AMLODIPINE [Concomitant]
     Active Substance: AMLODIPINE BESYLATE
  12. AREXVY [Concomitant]
     Active Substance: RECOMBINANT RESPIRATORY SYNCYTIAL VIRUS PRE-FUSION F PROTEIN

REACTIONS (8)
  - Eczema [Not Recovered/Not Resolved]
  - Rash [Not Recovered/Not Resolved]
  - Pruritus [Not Recovered/Not Resolved]
  - Skin exfoliation [Not Recovered/Not Resolved]
  - Erythema [Not Recovered/Not Resolved]
  - Skin irritation [Not Recovered/Not Resolved]
  - Dry skin [Not Recovered/Not Resolved]
  - Rash erythematous [Unknown]
